FAERS Safety Report 20743507 (Version 3)
Quarter: 2023Q1

REPORT INFORMATION
  Report Type: Spontaneous
  Country: DE (occurrence: DE)
  Receive Date: 20220425
  Receipt Date: 20230113
  Transmission Date: 20230418
  Serious: Yes (Other)
  Sender: FDA-Public Use
  Company Number: DE-DCGMA-22197476

PATIENT
  Age: 83 Year
  Sex: Male
  Weight: 87 kg

DRUGS (23)
  1. PAXLOVID [Suspect]
     Active Substance: NIRMATRELVIR\RITONAVIR
     Indication: COVID-19 treatment
     Dosage: 150/100
     Route: 048
     Dates: start: 20220312, end: 20220314
  2. PAXLOVID [Suspect]
     Active Substance: NIRMATRELVIR\RITONAVIR
     Indication: COVID-19
  3. LANTUS [Concomitant]
     Active Substance: INSULIN GLARGINE
     Dosage: 12 IU, 1X/DAY (0-0-0-1)
     Route: 058
  4. ENOXAPARIN SODIUM [Concomitant]
     Active Substance: ENOXAPARIN SODIUM
     Dosage: 0.4 ML, 1X/DAY
     Route: 058
  5. ENOXAPARIN SODIUM [Concomitant]
     Active Substance: ENOXAPARIN SODIUM
     Route: 058
  6. TILIDIN 1 A Pharma [Concomitant]
     Dosage: 50/4 MG, 2X/DAY 1-0-1
  7. METAMIZOL CT [Concomitant]
     Dosage: 500 MG, 4X/DAY
  8. INSULIN LISPRO [Concomitant]
     Active Substance: INSULIN LISPRO
     Dosage: ACCORDING TO PLAN
  9. METOPROLOL [Concomitant]
     Active Substance: METOPROLOL
     Dosage: 1-0-0
     Route: 048
  10. PANTOPRAZOL CT [Concomitant]
     Dosage: 1-0-0
     Route: 048
  11. AMLODIPIN CT [Concomitant]
     Dosage: 1-0-0
  12. TORASEMID CT [Concomitant]
     Dosage: 1-1/2-0, INCREASED ON 09MAR2022
  13. PREDNISOLONE [Concomitant]
     Active Substance: PREDNISOLONE
     Dosage: 1-0-0
     Route: 048
  14. OLMESARTAN MEDOXOMIL [Concomitant]
     Active Substance: OLMESARTAN MEDOXOMIL
     Dosage: 1-0-0
  15. METFORMIN CT [Concomitant]
     Dosage: 1-0-0
     Route: 048
  16. CHOLECALCIFEROL [Concomitant]
     Active Substance: CHOLECALCIFEROL
     Dosage: 1 DF, WEEKLY (ON SATURDAYS)
  17. FEBUXOSTAT [Concomitant]
     Active Substance: FEBUXOSTAT
     Dosage: 1-0-0 EVERY 2 DAYS
  18. FERRO-SANOL DUODENAL [Concomitant]
     Active Substance: FERROUS GLYCINE SULFATE
     Dosage: 1-0-0
  19. MOVICOL [Concomitant]
     Active Substance: POLYETHYLENE GLYCOL 3350\POTASSIUM CHLORIDE\SODIUM BICARBONATE\SODIUM CHLORIDE
     Dosage: 1-0-0
  20. ATORVASTATIN [Concomitant]
     Active Substance: ATORVASTATIN
     Dosage: 0-0-1 (PAUSED SINCE 11-MAR-2022)
     Dates: end: 20220311
  21. JANUVIA [Concomitant]
     Active Substance: SITAGLIPTIN PHOSPHATE
     Dosage: 1-0-0
     Route: 048
  22. ALENDRONSAEURE 1A PHARMA [Concomitant]
     Dosage: 70 MG, WEEKLY (ON SUNDAYS)
  23. LEVOTHYROXINE SODIUM [Concomitant]
     Active Substance: LEVOTHYROXINE SODIUM
     Dosage: 1-0-0

REACTIONS (8)
  - Off label use [Unknown]
  - Gastrointestinal haemorrhage [Recovered/Resolved]
  - Anal haemorrhage [Unknown]
  - Diarrhoea [Recovered/Resolved]
  - Nausea [Recovered/Resolved]
  - Hypochromic anaemia [Unknown]
  - Protein deficiency [Unknown]
  - Oedema peripheral [Unknown]

NARRATIVE: CASE EVENT DATE: 20220301
